FAERS Safety Report 4987587-5 (Version None)
Quarter: 2006Q2

REPORT INFORMATION
  Report Type: 
  Country: None (occurrence: None)
  Receive Date: 20060501
  Receipt Date: 20060403
  Transmission Date: 20061013
  Serious: Yes (Death, Life-Threatening)
  Sender: FDA-Public Use
  Company Number: TR-NOVOPROD-252153

PATIENT
  Age: 2 Year
  Sex: Female
  Weight: 13 kg

DRUGS (5)
  1. NOVOSEVEN [Suspect]
     Indication: PROPHYLAXIS
     Dosage: 390 MICROGRAM, SINGLE
     Dates: start: 20060330, end: 20060330
  2. NOVOSEVEN [Suspect]
     Dosage: 360 MICROGRAM, SINGLE
     Dates: start: 20060330, end: 20060330
  3. FRESH FROZEN PLASMA [Concomitant]
     Dosage: 10 ML/KG
     Dates: start: 20060330, end: 20060330
  4. RED BLOOD CELLS [Concomitant]
     Dosage: 10 ML/KG
     Dates: start: 20060330
  5. BICARBONAT [Concomitant]

REACTIONS (4)
  - ACUTE RESPIRATORY DISTRESS SYNDROME [None]
  - BRADYCARDIA [None]
  - HEPATIC FAILURE [None]
  - PULMONARY HAEMORRHAGE [None]
